FAERS Safety Report 5221326-8 (Version None)
Quarter: 2007Q1

REPORT INFORMATION
  Report Type: 
  Country: None (occurrence: None)
  Receive Date: 20070126
  Receipt Date: 20070116
  Transmission Date: 20070707
  Serious: Yes (Other)
  Sender: FDA-Public Use
  Company Number: BR-PFIZER INC-2006154178

PATIENT
  Sex: Female

DRUGS (2)
  1. FRADEMICINA [Suspect]
     Indication: INFLUENZA
  2. DIABINESE [Suspect]
     Indication: DIABETES MELLITUS
     Route: 048
     Dates: start: 19840101, end: 19940101

REACTIONS (3)
  - DIABETES MELLITUS [None]
  - HEPATIC PAIN [None]
  - HYPERTENSION [None]
